FAERS Safety Report 18193532 (Version 1)
Quarter: 2020Q3

REPORT INFORMATION
  Report Type: Spontaneous
  Country: GB (occurrence: GB)
  Receive Date: 20200825
  Receipt Date: 20200825
  Transmission Date: 20201103
  Serious: Yes (Other)
  Sender: FDA-Public Use
  Company Number: GB-PFIZER INC-2020325206

PATIENT
  Age: 65 Year
  Sex: Female
  Weight: 54 kg

DRUGS (7)
  1. SOLIFENACIN [Concomitant]
     Active Substance: SOLIFENACIN
     Dosage: ONE OR TWO DAILY
     Dates: start: 20180810
  2. GABAPENTIN. [Suspect]
     Active Substance: GABAPENTIN
     Dates: start: 20190717
  3. FYBOGEL [Concomitant]
     Active Substance: PLANTAGO OVATA SEED
     Dosage: FREQ:{ASNECESSARY};TWICE DAILY.
     Dates: start: 20180810
  4. BACLOFEN. [Concomitant]
     Active Substance: BACLOFEN
     Dosage: SLOWLY WEAN OFF
     Dates: start: 20180810
  5. ADCAL [CALCIUM CARBONATE] [Concomitant]
     Dates: start: 20180810
  6. TEVA LACTULOSE [Concomitant]
     Active Substance: LACTULOSE
     Dates: start: 20180810
  7. CITALOPRAM [Concomitant]
     Active Substance: CITALOPRAM HYDROBROMIDE
     Dates: start: 20180810

REACTIONS (1)
  - Muscle spasms [Recovered/Resolved]

NARRATIVE: CASE EVENT DATE: 20200731
